FAERS Safety Report 12282234 (Version 2)
Quarter: 2016Q2

REPORT INFORMATION
  Report Type: Spontaneous
  Country: US (occurrence: US)
  Receive Date: 20160419
  Receipt Date: 20160505
  Transmission Date: 20160815
  Serious: No
  Sender: FDA-Public Use
  Company Number: US-PFIZER INC-2016177927

PATIENT
  Sex: Female

DRUGS (2)
  1. PREMARIN [Suspect]
     Active Substance: ESTROGENS, CONJUGATED
     Indication: UTERINE DISORDER
  2. PREMARIN [Suspect]
     Active Substance: ESTROGENS, CONJUGATED
     Indication: UTERINE ATONY
     Dosage: 2 G, ALTERNATE DAY (EVERY OTHER DAY)

REACTIONS (2)
  - Abdominal discomfort [Unknown]
  - Product use issue [Unknown]
